FAERS Safety Report 16364906 (Version 1)
Quarter: 2019Q2

REPORT INFORMATION
  Report Type: Spontaneous
  Country: IN (occurrence: IN)
  Receive Date: 20190529
  Receipt Date: 20190529
  Transmission Date: 20190711
  Serious: Yes (Hospitalization, Other)
  Sender: FDA-Public Use
  Company Number: IN-LUPIN PHARMACEUTICALS INC.-2019-03208

PATIENT
  Age: 45 Year
  Sex: Male

DRUGS (4)
  1. ZOLPIDEM [Suspect]
     Active Substance: ZOLPIDEM\ZOLPIDEM TARTRATE
     Indication: INSOMNIA
     Dosage: 10 MILLIGRAM, QD, AT NIGHT TIME
     Route: 065
  2. ZOLPIDEM [Suspect]
     Active Substance: ZOLPIDEM\ZOLPIDEM TARTRATE
     Dosage: 20 MILLIGRAM, QD
     Route: 065
  3. LORAZEPAM. [Concomitant]
     Active Substance: LORAZEPAM
     Indication: PRODUCT USED FOR UNKNOWN INDICATION
     Dosage: UNK
     Route: 065
  4. ZOLPIDEM [Suspect]
     Active Substance: ZOLPIDEM\ZOLPIDEM TARTRATE
     Dosage: 2400 MILLIGRAM, QD
     Route: 065

REACTIONS (10)
  - Overdose [Unknown]
  - Insomnia [Unknown]
  - Tremor [Recovered/Resolved]
  - Muscular weakness [Unknown]
  - Disturbance in attention [Unknown]
  - Drug abuse [Unknown]
  - Irritability [Recovering/Resolving]
  - Withdrawal syndrome [Unknown]
  - Drug dependence [Unknown]
  - Dizziness [Unknown]
